FAERS Safety Report 14637156 (Version 1)
Quarter: 2018Q1

REPORT INFORMATION
  Report Type: Spontaneous
  Country: US (occurrence: US)
  Receive Date: 20180314
  Receipt Date: 20180314
  Transmission Date: 20180509
  Serious: No
  Sender: FDA-Public Use
  Company Number: US-ENDO PHARMACEUTICALS INC-2017-005848

PATIENT
  Sex: Male

DRUGS (1)
  1. OXYCODONE HCL 30MG [Suspect]
     Active Substance: OXYCODONE HYDROCHLORIDE
     Indication: PAIN MANAGEMENT
     Dosage: 4 DF, DAILY, START OUT WITH QUARTERS IN THE MORNING, HALVES AND THEN BY THE END OF THE NIGHT 4 PILLS
     Route: 048

REACTIONS (3)
  - Wrong technique in product usage process [Unknown]
  - Blood pressure increased [Unknown]
  - Constipation [Unknown]
